FAERS Safety Report 9175806 (Version 2)
Quarter: 2013Q2

REPORT INFORMATION
  Report Type: Report from Study
  Country: CA (occurrence: CA)
  Receive Date: 20130320
  Receipt Date: 20130412
  Transmission Date: 20140414
  Serious: Yes (Hospitalization, Other)
  Sender: FDA-Public Use
  Company Number: CA-ROCHE-1203950

PATIENT
  Age: 46 Year
  Sex: Female
  Weight: 81 kg

DRUGS (7)
  1. ACTEMRA [Suspect]
     Indication: RHEUMATOID ARTHRITIS
     Route: 042
     Dates: start: 20110531
  2. NAPROSYN [Suspect]
     Indication: PRODUCT USED FOR UNKNOWN INDICATION
     Route: 065
  3. DYAZIDE [Concomitant]
  4. SYMBICORT [Concomitant]
  5. ACCOLATE [Concomitant]
  6. PANTOLOC [Concomitant]
  7. VERAPAMIL [Concomitant]

REACTIONS (4)
  - Intervertebral disc protrusion [Unknown]
  - Nerve injury [Not Recovered/Not Resolved]
  - Nerve root compression [Not Recovered/Not Resolved]
  - Drug hypersensitivity [Unknown]
